FAERS Safety Report 6844104-2 (Version None)
Quarter: 2010Q3

REPORT INFORMATION
  Report Type: 
  Country: None (occurrence: None)
  Receive Date: 20100712
  Receipt Date: 20100630
  Transmission Date: 20110219
  Serious: Yes (Other)
  Sender: FDA-Public Use
  Company Number: 2010SP036758

PATIENT
  Age: 36 Year
  Sex: Female
  Weight: 90 kg

DRUGS (2)
  1. CLARINASE (LORATADINE 10MG / PSEUDOEPHEDRINE SULFATE 240MG) (LORATADIN [Suspect]
     Indication: SINUSITIS
     Dosage: ; PO
     Route: 048
     Dates: start: 20100628, end: 20100628
  2. CATAFAST [Concomitant]

REACTIONS (2)
  - DYSPNOEA [None]
  - RASH [None]
